FAERS Safety Report 9495212 (Version 1)
Quarter: 2013Q3

REPORT INFORMATION
  Report Type: Spontaneous
  Country: US (occurrence: US)
  Receive Date: 20130903
  Receipt Date: 20130903
  Transmission Date: 20140515
  Serious: Yes (Life-Threatening, Hospitalization, Other)
  Sender: FDA-Public Use
  Company Number: US-ROXANE LABORATORIES, INC.-2013-RO-01446RO

PATIENT
  Age: 12 Year
  Sex: Female

DRUGS (1)
  1. LEVETIRACETAM [Suspect]
     Indication: EPILEPSY

REACTIONS (7)
  - Toxic encephalopathy [Recovered/Resolved]
  - Renal failure acute [Unknown]
  - Metabolic acidosis [Recovered/Resolved]
  - Respiratory distress [Recovered/Resolved]
  - Respiratory failure [Recovered/Resolved]
  - Opsoclonus myoclonus [Recovered/Resolved]
  - Electrocardiogram delta waves abnormal [Recovered/Resolved]
